FAERS Safety Report 7959424-8 (Version None)
Quarter: 2011Q4

REPORT INFORMATION
  Report Type: 
  Country: None (occurrence: None)
  Receive Date: 20111206
  Receipt Date: 20111202
  Transmission Date: 20120403
  Serious: Yes (Death)
  Sender: FDA-Public Use
  Company Number: CO-SANOFI-AVENTIS-2011SA079234

PATIENT
  Age: 91 Year
  Sex: Female

DRUGS (2)
  1. ENOXAPARIN SODIUM [Suspect]
     Route: 058
     Dates: start: 20111107, end: 20111115
  2. ENOXAPARIN SODIUM [Suspect]
     Route: 058
     Dates: start: 20111103, end: 20111107

REACTIONS (1)
  - PULMONARY EMBOLISM [None]
